FAERS Safety Report 15925469 (Version 2)
Quarter: 2019Q2

REPORT INFORMATION
  Report Type: Spontaneous
  Country: US (occurrence: US)
  Receive Date: 20190206
  Receipt Date: 20190417
  Transmission Date: 20190711
  Serious: No
  Sender: FDA-Public Use
  Company Number: US-PFIZER INC-2019046180

PATIENT
  Age: 37 Year
  Sex: Female
  Weight: 52.16 kg

DRUGS (2)
  1. DESVENLAFAXINE SUCCINATE MONOHYDRATE [Suspect]
     Active Substance: DESVENLAFAXINE SUCCINATE
     Indication: DEPRESSION
  2. DESVENLAFAXINE SUCCINATE MONOHYDRATE [Suspect]
     Active Substance: DESVENLAFAXINE SUCCINATE
     Indication: GENERALISED ANXIETY DISORDER
     Dosage: 50 MG, 1X/DAY [EVERY MORNING BETWEEN 9 AM AND 10 AM OR EARLIER]
     Route: 048
     Dates: start: 201812

REACTIONS (6)
  - Depression [Recovering/Resolving]
  - Anxiety [Not Recovered/Not Resolved]
  - Therapeutic product effect decreased [Unknown]
  - Thinking abnormal [Recovered/Resolved]
  - Anger [Recovered/Resolved]
  - Decreased appetite [Recovered/Resolved]

NARRATIVE: CASE EVENT DATE: 201812
